FAERS Safety Report 9380347 (Version 3)
Quarter: 2013Q3

REPORT INFORMATION
  Report Type: Spontaneous
  Country: US (occurrence: US)
  Receive Date: 20130702
  Receipt Date: 20130906
  Transmission Date: 20140515
  Serious: Yes (Death)
  Sender: FDA-Public Use
  Company Number: US-GLAXOSMITHKLINE-A1029296A

PATIENT
  Age: 71 Year
  Sex: Female
  Weight: 71 kg

DRUGS (7)
  1. VOTRIENT [Suspect]
     Indication: RENAL CANCER METASTATIC
     Dosage: 200MG UNKNOWN
     Route: 065
     Dates: start: 20120730
  2. CARVEDILOL [Concomitant]
     Indication: CARDIAC FAILURE CONGESTIVE
  3. LASIX [Concomitant]
  4. JANUVIA [Concomitant]
  5. PRAVASTATIN [Concomitant]
  6. ALLOPURINOL [Concomitant]
  7. IBUPROFEN [Concomitant]

REACTIONS (1)
  - Cardiac disorder [Fatal]
